FAERS Safety Report 25401504 (Version 1)
Quarter: 2025Q2

REPORT INFORMATION
  Report Type: Spontaneous
  Country: CN (occurrence: CN)
  Receive Date: 20250605
  Receipt Date: 20250605
  Transmission Date: 20250716
  Serious: Yes (Hospitalization, Other)
  Sender: STRIDES
  Company Number: CN-STRIDES ARCOLAB LIMITED-2025SP006962

PATIENT
  Age: 30 Year
  Sex: Male

DRUGS (4)
  1. ETOPOSIDE [Suspect]
     Active Substance: ETOPOSIDE
     Indication: Pancreatoblastoma
     Route: 065
     Dates: start: 201908, end: 201909
  2. VINCRISTINE [Suspect]
     Active Substance: VINCRISTINE
     Indication: Pancreatoblastoma
     Route: 065
     Dates: start: 201908, end: 201909
  3. CYCLOPHOSPHAMIDE [Suspect]
     Active Substance: CYCLOPHOSPHAMIDE
     Indication: Pancreatoblastoma
     Route: 065
     Dates: start: 201908, end: 201909
  4. CISPLATIN [Suspect]
     Active Substance: CISPLATIN
     Indication: Pancreatoblastoma
     Route: 065
     Dates: start: 201908, end: 201909

REACTIONS (2)
  - Gastrointestinal disorder [Unknown]
  - Drug ineffective for unapproved indication [Unknown]

NARRATIVE: CASE EVENT DATE: 20190101
